FAERS Safety Report 9013018 (Version 1)
Quarter: 2013Q1

REPORT INFORMATION
  Report Type: Spontaneous
  Country: AU (occurrence: AU)
  Receive Date: 20130114
  Receipt Date: 20130114
  Transmission Date: 20140127
  Serious: Yes (Hospitalization, Other)
  Sender: FDA-Public Use
  Company Number: AU-AMGEN-AUSSP2013001751

PATIENT
  Age: 57 Year
  Sex: Male

DRUGS (6)
  1. NEULASTA [Suspect]
     Indication: PRODUCT USED FOR UNKNOWN INDICATION
     Dosage: UNK
     Dates: start: 20120830
  2. RITUXIMAB [Concomitant]
     Indication: LYMPHOMA
     Dosage: UNK
     Dates: start: 20120829
  3. CYCLOPHOSPHAMIDE [Concomitant]
     Indication: LYMPHOMA
     Dosage: UNK
     Dates: start: 20120829
  4. DOXORUBICIN [Concomitant]
     Indication: LYMPHOMA
     Dosage: UNK
     Dates: start: 20120829
  5. ONCOVIN [Concomitant]
     Indication: LYMPHOMA
     Dosage: UNK
     Dates: start: 20120829
  6. PREDNISOLONE [Concomitant]
     Indication: LYMPHOMA
     Dosage: UNK
     Dates: start: 20120829

REACTIONS (4)
  - Sepsis [Recovered/Resolved]
  - Escherichia infection [Recovered/Resolved]
  - Cellulitis staphylococcal [Recovered/Resolved]
  - Immune system disorder [Unknown]
